FAERS Safety Report 17162740 (Version 1)
Quarter: 2019Q4

REPORT INFORMATION
  Report Type: Spontaneous
  Country: US (occurrence: US)
  Receive Date: 20191216
  Receipt Date: 20191216
  Transmission Date: 20200122
  Serious: Yes (Hospitalization)
  Sender: FDA-Public Use
  Company Number: None

PATIENT
  Age: 69 Year
  Sex: Female

DRUGS (15)
  1. PROMETHAZINE [Concomitant]
     Active Substance: PROMETHAZINE HYDROCHLORIDE
  2. TRAMADOL. [Concomitant]
     Active Substance: TRAMADOL
  3. CEFADROXIL. [Concomitant]
     Active Substance: CEFADROXIL
  4. CULTURELLE [Concomitant]
     Active Substance: LACTOBACILLUS RHAMNOSUS
  5. INSULIN [Concomitant]
     Active Substance: INSULIN NOS
  6. CLOTRIMAZOLE. [Concomitant]
     Active Substance: CLOTRIMAZOLE
  7. ESTRADIOL. [Concomitant]
     Active Substance: ESTRADIOL
  8. FUROSEMIDE. [Concomitant]
     Active Substance: FUROSEMIDE
  9. TALTZ [Suspect]
     Active Substance: IXEKIZUMAB
     Indication: PSORIASIS
     Dosage: ?          OTHER FREQUENCY:EVERY MONTH;?
     Route: 058
     Dates: start: 20181205
  10. CEPHALEXIN. [Concomitant]
     Active Substance: CEPHALEXIN
  11. NYSTOP POW [Concomitant]
  12. BENZONATATE. [Concomitant]
     Active Substance: BENZONATATE
  13. METHOTREXATE. [Concomitant]
     Active Substance: METHOTREXATE
  14. SSD CRE [Concomitant]
  15. AMOX/K CLAV [Concomitant]
     Active Substance: AMOXICILLIN\CLAVULANATE POTASSIUM

REACTIONS (1)
  - Sepsis [None]
